FAERS Safety Report 10890777 (Version 2)
Quarter: 2015Q2

REPORT INFORMATION
  Report Type: Spontaneous
  Country: JP (occurrence: JP)
  Receive Date: 20150305
  Receipt Date: 20150401
  Transmission Date: 20150821
  Serious: Yes (Hospitalization)
  Sender: FDA-Public Use
  Company Number: JP-MERCK-1503JPN000102

PATIENT
  Age: 71 Year
  Sex: Female

DRUGS (9)
  1. PARIET [Concomitant]
     Active Substance: RABEPRAZOLE SODIUM
     Dosage: 10 MG, QD
     Route: 048
     Dates: start: 2010, end: 20150220
  2. MONTELUKAST [Suspect]
     Active Substance: MONTELUKAST SODIUM
     Indication: ASTHMA
     Dosage: 10 MG, QD
     Route: 048
     Dates: start: 2010, end: 20150207
  3. RIFADIN [Concomitant]
     Active Substance: RIFAMPIN
     Dosage: 450 MG, QD
     Route: 048
     Dates: start: 2010, end: 20150125
  4. CALONAL [Concomitant]
     Active Substance: ACETAMINOPHEN
     Dosage: DOSE UNKNOWN
     Route: 048
     Dates: start: 20141220, end: 20150106
  5. MUCODYNE [Suspect]
     Active Substance: CARBOCYSTEINE
     Indication: PRODUCTIVE COUGH
     Dosage: DAILY DOSE 1500MG, TID
     Route: 048
     Dates: start: 20141220, end: 20150105
  6. KLARICID [Concomitant]
     Active Substance: CLARITHROMYCIN
     Dosage: 800 MG, QD
     Route: 048
     Dates: start: 2010, end: 20150220
  7. ASTOMIN [Concomitant]
     Active Substance: DIMEMORFAN
     Dosage: 60 MG, QD
     Route: 048
     Dates: start: 20141220, end: 20150105
  8. GRACEVIT [Concomitant]
     Active Substance: SITAFLOXACIN
     Dosage: 200 MG/DAY
     Route: 048
     Dates: start: 20141220, end: 20150105
  9. ESANBUTOL [Concomitant]
     Active Substance: ETHAMBUTOL HYDROCHLORIDE
     Dosage: 500 MG, QD
     Route: 048
     Dates: start: 2010, end: 20150220

REACTIONS (1)
  - Liver disorder [Not Recovered/Not Resolved]

NARRATIVE: CASE EVENT DATE: 20141226
